FAERS Safety Report 7966970 (Version 2)
Quarter: 2013Q2

REPORT INFORMATION
  Report Type: Spontaneous
  Country: SE (occurrence: SE)
  Receive Date: 20110531
  Receipt Date: 20130625
  Transmission Date: 20140414
  Serious: Yes (Other)
  Sender: FDA-Public Use
  Company Number: SE-JNJFOC-20110507758

PATIENT
  Age: 71 Year
  Sex: Female

DRUGS (14)
  1. REMICADE [Suspect]
     Indication: RHEUMATOID ARTHRITIS
     Route: 042
     Dates: start: 200302, end: 201105
  2. IMUREL [Suspect]
     Indication: RHEUMATOID ARTHRITIS
     Route: 048
     Dates: start: 200302
  3. IMUREL [Suspect]
     Indication: RHEUMATOID ARTHRITIS
     Route: 048
     Dates: start: 2007, end: 201008
  4. FOSAMAX [Concomitant]
  5. PREDNISOLON [Concomitant]
  6. LASIX [Concomitant]
  7. PLENDIL [Concomitant]
  8. ORUDIS (KETOPROFEN) [Concomitant]
  9. CALCICHEW-D3 [Concomitant]
     Dosage: 500 MG/400 IE
  10. SALAZOPYRIN [Concomitant]
     Dosage: FREQUENCY- 2X2
     Route: 065
  11. PROPAVAN [Concomitant]
     Dosage: 1-2 AS NECESSARY
     Route: 065
  12. LOSARTAN [Concomitant]
     Dosage: HALF OF 50 MG
     Route: 065
  13. SELOKEN ZOC [Concomitant]
     Route: 065
  14. STILNOCT [Concomitant]
     Route: 065

REACTIONS (1)
  - Squamous cell carcinoma of skin [Recovered/Resolved]
